FAERS Safety Report 4989215-1 (Version None)
Quarter: 2006Q2

REPORT INFORMATION
  Report Type: 
  Country: None (occurrence: None)
  Receive Date: 20060425
  Receipt Date: 20060410
  Transmission Date: 20061013
  Serious: Yes (Hospitalization, Other)
  Sender: FDA-Public Use
  Company Number: 2006050115

PATIENT
  Age: 57 Year
  Sex: Male

DRUGS (1)
  1. PREDNISONE TAB [Suspect]
     Indication: POLYMYALGIA RHEUMATICA
     Dosage: 45 MG (15 MG, 1 IN 8 HR), ORAL
     Route: 048

REACTIONS (18)
  - AORTIC VALVE DISEASE [None]
  - ATRIOVENTRICULAR BLOCK COMPLETE [None]
  - BLOOD PRESSURE DIASTOLIC DECREASED [None]
  - CARDIAC FAILURE CONGESTIVE [None]
  - CARDIAC MURMUR [None]
  - CARDIAC VALVE VEGETATION [None]
  - COLON ADENOMA [None]
  - CONJUNCTIVAL HAEMORRHAGE [None]
  - GALLOP RHYTHM PRESENT [None]
  - HAEMATOCRIT DECREASED [None]
  - HEART RATE INCREASED [None]
  - MITRAL VALVE DISEASE [None]
  - PAIN IN EXTREMITY [None]
  - POST PROCEDURAL COMPLICATION [None]
  - PULMONARY EMBOLISM [None]
  - SEPTIC EMBOLUS [None]
  - SPLINTER HAEMORRHAGES [None]
  - STREPTOCOCCAL INFECTION [None]
